FAERS Safety Report 20132513 (Version 1)
Quarter: 2021Q4

REPORT INFORMATION
  Report Type: Spontaneous
  Country: US (occurrence: US)
  Receive Date: 20211130
  Receipt Date: 20211130
  Transmission Date: 20220303
  Serious: Yes (Other)
  Sender: FDA-Public Use
  Company Number: US-LUNDBECK-DKLU3041473

PATIENT
  Age: 7 Year
  Sex: Female

DRUGS (2)
  1. SABRIL [Suspect]
     Active Substance: VIGABATRIN
     Indication: Epilepsy
     Dosage: OVERDOSE: 3750MG DAILY
     Route: 048
  2. SABRIL [Suspect]
     Active Substance: VIGABATRIN
     Indication: Seizure
     Dosage: OVERDOSE: 3750MG DAILY
     Route: 048

REACTIONS (5)
  - Drug withdrawal convulsions [Not Recovered/Not Resolved]
  - Lethargy [Unknown]
  - Pyrexia [Recovered/Resolved]
  - Product dose omission issue [Unknown]
  - Prescribed overdose [Unknown]

NARRATIVE: CASE EVENT DATE: 20211122
